FAERS Safety Report 14975480 (Version 1)
Quarter: 2018Q3

REPORT INFORMATION
  Report Type: Spontaneous
  Country: US (occurrence: US)
  Receive Date: 20180605
  Receipt Date: 20180605
  Transmission Date: 20181010
  Serious: No
  Sender: FDA-Public Use
  Company Number: US-TARO-2018TAR00313

PATIENT
  Sex: Female

DRUGS (2)
  1. CLORAZEPATE DIPOTASSIUM TABLETS USP 15 MG [Suspect]
     Active Substance: CLORAZEPATE DIPOTASSIUM
     Dosage: UNK
  2. LIQUID IRON (HI?TECH) [Suspect]
     Active Substance: FERROUS SULFATE
     Dosage: UNK
     Dates: start: 201804

REACTIONS (1)
  - Diarrhoea [Not Recovered/Not Resolved]

NARRATIVE: CASE EVENT DATE: 201804
